FAERS Safety Report 4533278-4 (Version None)
Quarter: 2004Q4

REPORT INFORMATION
  Report Type: 
  Country: None (occurrence: None)
  Receive Date: 20041210
  Receipt Date: 20040812
  Transmission Date: 20050328
  Serious: Yes (Disabling)
  Sender: FDA-Public Use
  Company Number: A03200402726

PATIENT
  Age: 53 Year
  Sex: Male
  Weight: 76.2043 kg

DRUGS (1)
  1. ELOXATIN [Suspect]
     Indication: COLON CANCER
     Dosage: 165 MG Q2W - INTRAVENOUS NOS
     Route: 042
     Dates: start: 20031203, end: 20031203

REACTIONS (3)
  - ILL-DEFINED DISORDER [None]
  - PARAESTHESIA [None]
  - PERIPHERAL SENSORY NEUROPATHY [None]
